FAERS Safety Report 14181480 (Version 3)
Quarter: 2018Q1

REPORT INFORMATION
  Report Type: Spontaneous
  Country: US (occurrence: US)
  Receive Date: 20171113
  Receipt Date: 20180125
  Transmission Date: 20180508
  Serious: No
  Sender: FDA-Public Use
  Company Number: US-LEO PHARMA-305357

PATIENT
  Age: 70 Year
  Sex: Female

DRUGS (1)
  1. PICATO [Suspect]
     Active Substance: INGENOL MEBUTATE
     Indication: PRECANCEROUS SKIN LESION
     Route: 061
     Dates: start: 20171027, end: 20171028

REACTIONS (9)
  - Application site haemorrhage [Recovered/Resolved]
  - Application site burn [Recovered/Resolved]
  - Loss of personal independence in daily activities [Recovered/Resolved]
  - Application site vesicles [Recovered/Resolved]
  - Application site warmth [Recovered/Resolved]
  - Application site pain [Recovered/Resolved]
  - Application site erythema [Recovering/Resolving]
  - Expired product administered [Unknown]
  - Crying [Recovered/Resolved]

NARRATIVE: CASE EVENT DATE: 20171028
